FAERS Safety Report 9689204 (Version 1)
Quarter: 2013Q4

REPORT INFORMATION
  Report Type: Spontaneous
  Country: US (occurrence: US)
  Receive Date: 20131114
  Receipt Date: 20131114
  Transmission Date: 20140711
  Serious: Yes (Other)
  Sender: FDA-Public Use
  Company Number: US-CELGENEUS-163-20785-13111699

PATIENT
  Age: 53 Year
  Sex: Female

DRUGS (2)
  1. THALOMID [Suspect]
     Indication: CUTANEOUS LUPUS ERYTHEMATOSUS
     Dosage: 50 MILLIGRAM
     Route: 048
     Dates: start: 200707
  2. THALOMID [Suspect]
     Dosage: 50 MILLIGRAM
     Route: 048

REACTIONS (2)
  - Anal cancer [Unknown]
  - Paraesthesia [Recovered/Resolved]
